FAERS Safety Report 7750668-7 (Version None)
Quarter: 2011Q3

REPORT INFORMATION
  Report Type: 
  Country: None (occurrence: None)
  Receive Date: 20110914
  Receipt Date: 20110906
  Transmission Date: 20111222
  Serious: Yes (Life-Threatening, Hospitalization, Disabling, Other)
  Sender: FDA-Public Use
  Company Number: CH-GLAXOSMITHKLINE-B0747220A

PATIENT
  Age: 55 Year
  Sex: Female

DRUGS (1)
  1. LAMOTRIGINE [Suspect]
     Indication: BIPOLAR DISORDER
     Dosage: 100MG PER DAY
     Route: 065

REACTIONS (13)
  - BLISTER [None]
  - PYREXIA [None]
  - SYMBLEPHARON [None]
  - TRICHIASIS [None]
  - BLINDNESS [None]
  - ASPIRATION [None]
  - DYSPHAGIA [None]
  - TOXIC EPIDERMAL NECROLYSIS [None]
  - ODYNOPHAGIA [None]
  - MUCOSAL EROSION [None]
  - RASH [None]
  - SKIN LESION [None]
  - UPPER AIRWAY OBSTRUCTION [None]
